FAERS Safety Report 10016592 (Version 2)
Quarter: 2014Q1

REPORT INFORMATION
  Report Type: Spontaneous
  Country: US (occurrence: US)
  Receive Date: 20140317
  Receipt Date: 20140321
  Transmission Date: 20141002
  Serious: No
  Sender: FDA-Public Use
  Company Number: US-PFIZER INC-2014076737

PATIENT
  Age: 66 Year
  Sex: Female

DRUGS (6)
  1. LYRICA [Suspect]
     Indication: NEURALGIA
     Dosage: UNK
  2. LYRICA [Suspect]
     Indication: BURNING SENSATION
     Dosage: 50 MG, 3X/DAY
  3. LYRICA [Suspect]
     Indication: PARAESTHESIA
  4. PANTOPRAZOLE [Concomitant]
     Dosage: 40 MG, UNK
  5. SIMVASTATIN [Concomitant]
     Dosage: 20 MG, UNK
  6. VIAGRA [Concomitant]
     Dosage: 50 MG, UNK

REACTIONS (1)
  - Skin ulcer [Unknown]
